FAERS Safety Report 16035438 (Version 3)
Quarter: 2019Q1

REPORT INFORMATION
  Report Type: Spontaneous
  Country: US (occurrence: US)
  Receive Date: 20190305
  Receipt Date: 20190328
  Transmission Date: 20190418
  Serious: Yes (Death, Hospitalization)
  Sender: FDA-Public Use
  Company Number: US-ALKERMES INC.-ALK-2019-001190

PATIENT
  Age: 46 Year
  Sex: Female
  Weight: 61.68 kg

DRUGS (1)
  1. VIVITROL [Suspect]
     Active Substance: NALTREXONE
     Indication: ALCOHOLISM
     Dosage: 380 MG, QMO
     Route: 030
     Dates: start: 201809

REACTIONS (2)
  - Hepatic failure [Fatal]
  - Product dose omission [Unknown]

NARRATIVE: CASE EVENT DATE: 20190301
